FAERS Safety Report 16569144 (Version 1)
Quarter: 2019Q3

REPORT INFORMATION
  Report Type: Spontaneous
  Country: FR (occurrence: FR)
  Receive Date: 20190714
  Receipt Date: 20190714
  Transmission Date: 20191004
  Serious: Yes (Other)
  Sender: FDA-Public Use
  Company Number: PHHY2019FR158732

PATIENT
  Age: 76 Year
  Sex: Female
  Weight: 53 kg

DRUGS (1)
  1. AMOXICILLIN. [Suspect]
     Active Substance: AMOXICILLIN
     Indication: ENCEPHALITIS
     Dosage: 2 G, QD
     Route: 042
     Dates: start: 20190526, end: 20190602

REACTIONS (4)
  - Acute kidney injury [Recovering/Resolving]
  - Haematuria [Recovered/Resolved]
  - Crystalluria [Recovered/Resolved]
  - Overdose [Recovered/Resolved]

NARRATIVE: CASE EVENT DATE: 20190531
